FAERS Safety Report 9557445 (Version 1)
Quarter: 2013Q3

REPORT INFORMATION
  Report Type: Spontaneous
  Country: US (occurrence: None)
  Receive Date: 20130726
  Receipt Date: 20130726
  Transmission Date: 20140515
  Serious: Yes (Hospitalization)
  Sender: FDA-Public Use
  Company Number: UTC-019615

PATIENT
  Age: 46 Year
  Sex: Male

DRUGS (1)
  1. TYVASO [Suspect]
     Indication: COR PULMONALE CHRONIC
     Dosage: 216 MCG (54 MCG, 4 IN 1 D)
     Route: 055
     Dates: start: 20120404

REACTIONS (4)
  - Pneumonia [None]
  - Nausea [None]
  - Cough [None]
  - Decreased appetite [None]
